FAERS Safety Report 7548911-2 (Version None)
Quarter: 2011Q2

REPORT INFORMATION
  Report Type: 
  Country: None (occurrence: None)
  Receive Date: 20110615
  Receipt Date: 20110523
  Transmission Date: 20111010
  Serious: Yes (Hospitalization)
  Sender: FDA-Public Use
  Company Number: JP-ASTRAZENECA-2011SE32027

PATIENT
  Age: 78 Year
  Sex: Female
  Weight: 39 kg

DRUGS (2)
  1. EXEMESTANE [Suspect]
     Indication: BREAST CANCER METASTATIC
     Route: 048
     Dates: end: 20070729
  2. ANASTROZOLE [Suspect]
     Indication: BREAST CANCER METASTATIC
     Route: 048
     Dates: start: 20051116, end: 20060306

REACTIONS (3)
  - DECREASED APPETITE [None]
  - HEPATIC FUNCTION ABNORMAL [None]
  - DIZZINESS [None]
